FAERS Safety Report 5601246-7 (Version None)
Quarter: 2008Q1

REPORT INFORMATION
  Report Type: 
  Country: None (occurrence: None)
  Receive Date: 20080122
  Receipt Date: 20080122
  Transmission Date: 20080703
  Serious: No
  Sender: FDA-Public Use
  Company Number: None

PATIENT
  Age: 36 Year
  Sex: Male
  Weight: 90.7194 kg

DRUGS (1)
  1. ZICAM [Suspect]
     Indication: NASOPHARYNGITIS
     Dosage: NASAL GEL SQUIRT FEW TIMES DAILY NASAL 1.5 TO 1.75 YEARS AGO
     Route: 045

REACTIONS (2)
  - ANOSMIA [None]
  - HYPOGEUSIA [None]
